FAERS Safety Report 5133059-7 (Version None)
Quarter: 2006Q4

REPORT INFORMATION
  Report Type: 
  Country: None (occurrence: None)
  Receive Date: 20061017
  Receipt Date: 20061010
  Transmission Date: 20070319
  Serious: Yes (Hospitalization)
  Sender: FDA-Public Use
  Company Number: 2006-01156

PATIENT
  Age: 59 Year
  Sex: Female

DRUGS (8)
  1. VELCADE [Suspect]
     Indication: MULTIPLE MYELOMA
     Dosage: 1.30 MG/M2, INTRAVENOUS
     Route: 042
  2. ADRIAMYCIN PFS [Suspect]
     Indication: MULTIPLE MYELOMA
     Dosage: 9.00 MG/M2, INTRAVENOUS
     Route: 042
  3. DEXAMETHASONE [Suspect]
     Indication: MULTIPLE MYELOMA
     Dosage: 40 MG, ORAL
     Route: 048
  4. SULFAMETHOXAZOLE + TRIMETHOPRIM [Concomitant]
  5. FLUCONAZOLE [Concomitant]
  6. NEXIUM [Concomitant]
  7. DURAGESIC-100 [Concomitant]
  8. PRIMPERAN TAB [Concomitant]

REACTIONS (1)
  - MENINGOENCEPHALITIS HERPETIC [None]
